FAERS Safety Report 4787780-0 (Version None)
Quarter: 2005Q4

REPORT INFORMATION
  Report Type: 
  Country: None (occurrence: None)
  Receive Date: 20051004
  Receipt Date: 20050526
  Transmission Date: 20060501
  Serious: Yes (Hospitalization, Disabling)
  Sender: FDA-Public Use
  Company Number: US-MERCK-0505USA03256

PATIENT
  Age: 35 Year
  Sex: Female
  Weight: 101 kg

DRUGS (22)
  1. VIOXX [Suspect]
     Indication: RHEUMATOID ARTHRITIS
     Route: 048
     Dates: start: 20020101, end: 20040816
  2. AMBIEN [Concomitant]
     Route: 065
  3. AZMACORT [Concomitant]
     Route: 065
  4. COMBIVIR [Concomitant]
     Route: 065
  5. SEROQUEL [Concomitant]
     Route: 065
  6. KALETRA [Concomitant]
     Route: 065
  7. VITAMINS (UNSPECIFIED) [Concomitant]
     Route: 065
  8. ZYPREXA [Concomitant]
     Route: 065
  9. ZOVIRAX [Concomitant]
     Route: 065
  10. VIREAD [Concomitant]
     Route: 065
  11. GASTROINTESTINAL PREPARATIONS (UNSPECIFIED) [Concomitant]
     Route: 065
  12. ACETAMINOPHEN [Concomitant]
     Route: 065
  13. LACTULOSE [Concomitant]
     Route: 065
  14. BUSPIRONE HYDROCHLORIDE [Concomitant]
     Route: 065
  15. HYDROXYZINE HYDROCHLORIDE [Concomitant]
     Route: 065
  16. DIPHENHYDRAMINE HYDROCHLORIDE [Concomitant]
     Route: 065
  17. METOCLOPRAMIDE [Concomitant]
     Route: 065
  18. ENDOCET [Concomitant]
     Route: 065
     Dates: start: 20030701
  19. CLOTRIMAZOLE [Concomitant]
     Route: 065
  20. MIRTAZAPINE [Concomitant]
     Route: 065
  21. LEVAQUIN [Concomitant]
     Route: 065
  22. [THERAPY UNSPECIFIED] [Concomitant]
     Route: 065

REACTIONS (14)
  - CEREBROVASCULAR ACCIDENT [None]
  - CLAUSTROPHOBIA [None]
  - CONSTIPATION [None]
  - CONVULSION [None]
  - DEPRESSION [None]
  - GASTRIC DISORDER [None]
  - INSOMNIA [None]
  - LIMB INJURY [None]
  - MULTIPLE ALLERGIES [None]
  - NAUSEA [None]
  - OEDEMA PERIPHERAL [None]
  - PAIN [None]
  - PANIC DISORDER [None]
  - SCHIZOPHRENIA [None]
